FAERS Safety Report 4383947-4 (Version None)
Quarter: 2004Q2

REPORT INFORMATION
  Report Type: 
  Country: None (occurrence: None)
  Receive Date: 20040624
  Receipt Date: 20040616
  Transmission Date: 20050107
  Serious: Yes (Other)
  Sender: FDA-Public Use
  Company Number: PHBS2004IT07926

PATIENT
  Age: 49 Year
  Sex: Female

DRUGS (4)
  1. CYCLOSPORINE [Suspect]
     Indication: LIVER TRANSPLANT
     Dosage: 300 MG, BID
     Route: 065
  2. AZATHIOPRINE [Concomitant]
     Indication: LIVER TRANSPLANT
     Dosage: 50 MG/D
     Route: 065
  3. HYDROCORTISONE [Concomitant]
     Indication: LIVER TRANSPLANT
     Dosage: 100 MG, BID
     Route: 065
  4. FLUCONAZOLE [Concomitant]
     Dosage: 100 MG, BID
     Route: 042

REACTIONS (2)
  - DELIRIUM [None]
  - PERSECUTORY DELUSION [None]
